FAERS Safety Report 12476479 (Version 3)
Quarter: 2016Q4

REPORT INFORMATION
  Report Type: Spontaneous
  Country: US (occurrence: US)
  Receive Date: 20160617
  Receipt Date: 20161026
  Transmission Date: 20170207
  Serious: No
  Sender: FDA-Public Use
  Company Number: US-BIOGEN-2016BI00247751

PATIENT
  Age: 59 Year
  Sex: Female

DRUGS (8)
  1. AMPYRA [Concomitant]
     Active Substance: DALFAMPRIDINE
     Route: 048
     Dates: start: 201511
  2. AVONEX [Suspect]
     Active Substance: INTERFERON BETA-1A
     Indication: PRODUCT USED FOR UNKNOWN INDICATION
     Route: 065
     Dates: start: 2004
  3. 4-AMINOPYRIDINE [Concomitant]
     Active Substance: DALFAMPRIDINE
     Route: 065
  4. AMPYRA [Concomitant]
     Active Substance: DALFAMPRIDINE
     Indication: GAIT DISTURBANCE
     Route: 048
     Dates: start: 20141203, end: 20141214
  5. PLEGRIDY [Suspect]
     Active Substance: PEGINTERFERON BETA-1A
     Indication: MULTIPLE SCLEROSIS
     Route: 065
  6. AMPYRA [Concomitant]
     Active Substance: DALFAMPRIDINE
     Route: 048
     Dates: end: 20160707
  7. 4-AMINOPYRIDINE [Concomitant]
     Active Substance: DALFAMPRIDINE
     Indication: PRODUCT USED FOR UNKNOWN INDICATION
     Route: 048
  8. AMPYRA [Concomitant]
     Active Substance: DALFAMPRIDINE
     Route: 048
     Dates: start: 201605

REACTIONS (21)
  - Abdominal discomfort [Recovered/Resolved]
  - Dehydration [Unknown]
  - Vertigo [Not Recovered/Not Resolved]
  - Heat exhaustion [Unknown]
  - Musculoskeletal disorder [Not Recovered/Not Resolved]
  - Insomnia [Unknown]
  - Nausea [Recovered/Resolved]
  - General symptom [Not Recovered/Not Resolved]
  - Hypobarism [Unknown]
  - Gait disturbance [Unknown]
  - Asthenia [Recovered/Resolved]
  - Paraesthesia [Unknown]
  - Drug ineffective [Unknown]
  - Muscular weakness [Unknown]
  - Walking aid user [Not Recovered/Not Resolved]
  - Burning sensation [Unknown]
  - Injection site reaction [Unknown]
  - Fatigue [Unknown]
  - Hypoaesthesia [Unknown]
  - Dizziness [Unknown]
  - Mobility decreased [Unknown]

NARRATIVE: CASE EVENT DATE: 201412
